FAERS Safety Report 4977564-2 (Version None)
Quarter: 2006Q2

REPORT INFORMATION
  Report Type: 
  Country: None (occurrence: None)
  Receive Date: 20060414
  Receipt Date: 20060404
  Transmission Date: 20061013
  Serious: Yes (Hospitalization, Disabling)
  Sender: FDA-Public Use
  Company Number: 2006-02-1106

PATIENT
  Age: 71 Year
  Sex: Female
  Weight: 50 kg

DRUGS (3)
  1. PEG-INTRON [Suspect]
     Indication: HEPATITIS C
     Dosage: 50 MCG QW SUBCUTANEOUS
     Route: 058
     Dates: start: 20050819, end: 20060111
  2. REBETOL [Suspect]
     Indication: HEPATITIS C
     Dosage: 600 MG  ORAL
     Route: 048
     Dates: start: 20050819, end: 20060114
  3. AMLODIPINE BESILATE TABLETS [Concomitant]

REACTIONS (5)
  - DYSSTASIA [None]
  - GAIT DISTURBANCE [None]
  - HYDROCEPHALUS [None]
  - THALAMUS HAEMORRHAGE [None]
  - URINARY INCONTINENCE [None]
